FAERS Safety Report 8122381-8 (Version None)
Quarter: 2012Q1

REPORT INFORMATION
  Report Type: 
  Country: None (occurrence: None)
  Receive Date: 20120208
  Receipt Date: 20120131
  Transmission Date: 20120608
  Serious: Yes (Other)
  Sender: FDA-Public Use
  Company Number: CA-GLAXOSMITHKLINE-A0959275A

PATIENT
  Sex: Male
  Weight: 61.4 kg

DRUGS (1)
  1. MALARONE [Suspect]
     Indication: MALARIA PROPHYLAXIS
     Route: 048
     Dates: start: 20111207

REACTIONS (4)
  - FALL [None]
  - HALLUCINATION, VISUAL [None]
  - ABNORMAL DREAMS [None]
  - VISUAL FIELD DEFECT [None]
